FAERS Safety Report 5529764-0 (Version None)
Quarter: 2007Q4

REPORT INFORMATION
  Report Type: 
  Country: None (occurrence: None)
  Receive Date: 20071127
  Receipt Date: 20071112
  Transmission Date: 20080405
  Serious: Yes (Death)
  Sender: FDA-Public Use
  Company Number: US021694

PATIENT
  Age: 35 Year
  Sex: Female

DRUGS (11)
  1. PROVIGIL [Suspect]
     Indication: SOMNOLENCE
     Dosage: 200 MG TWICE WEEKLY ORAL
     Route: 048
     Dates: start: 20061201, end: 20061201
  2. PROVIGIL [Suspect]
     Indication: SOMNOLENCE
     Dosage: 200 MG ONCE ORAL
     Route: 048
     Dates: start: 20070101, end: 20071001
  3. PROVIGIL [Suspect]
     Indication: SOMNOLENCE
     Dosage: 100 TO 200MG INTERMITTENTLY (ONE HALF TO ONE TABLET) ORAL
     Route: 048
     Dates: start: 20071008
  4. LAMICTAL [Suspect]
     Indication: DEPRESSION
     Dosage: UPTITRATED 254MG WEEKLY, AS TOLERATED QD, ORAL
     Route: 048
     Dates: start: 20060801, end: 20070101
  5. LAMICTAL [Suspect]
     Indication: DEPRESSION
     Dosage: 300 MG QD ORAL
     Route: 048
     Dates: start: 20070401
  6. CYMBALTA [Suspect]
     Indication: DEPRESSION
     Dosage: 60 MG QD ORAL
     Route: 048
     Dates: start: 20060901, end: 20061001
  7. CYMBALTA [Suspect]
     Indication: DEPRESSION
     Dosage: 120 MG QD ORAL
     Route: 048
     Dates: start: 20061001
  8. GEODON [Suspect]
     Indication: BIPOLAR II DISORDER
     Dosage: 160 MG QD ORAL
     Route: 048
     Dates: start: 20060901, end: 20070501
  9. GEODON [Suspect]
     Indication: BIPOLAR II DISORDER
     Dosage: 220 MG QD ORAL
     Route: 048
     Dates: start: 20070501
  10. SEROQUEL [Suspect]
     Indication: BIPOLAR II DISORDER
     Dosage: 200 MG QD ORAL
     Route: 048
     Dates: start: 20010101
  11. WELLBUTRIN XL [Suspect]
     Indication: DEPRESSION
     Dosage: 450 MG OFF DRUG X 1 WEEK IN MAR-07-07 QD ORAL
     Route: 048
     Dates: start: 20061101

REACTIONS (2)
  - GRAND MAL CONVULSION [None]
  - RESPIRATORY ARREST [None]
